FAERS Safety Report 10162484 (Version 2)
Quarter: 2014Q2

REPORT INFORMATION
  Report Type: Spontaneous
  Country: SE (occurrence: SE)
  Receive Date: 20140509
  Receipt Date: 20140509
  Transmission Date: 20141212
  Serious: Yes (Hospitalization, Disabling)
  Sender: FDA-Public Use
  Company Number: SE-ASTRAZENECA-2013SE94563

PATIENT
  Age: 54 Year
  Sex: Male
  Weight: 118 kg

DRUGS (9)
  1. CRESTOR [Suspect]
     Indication: HYPERTRIGLYCERIDAEMIA
     Route: 048
     Dates: start: 200809, end: 20131120
  2. ATENOLOL [Concomitant]
  3. KALEORID [Concomitant]
  4. METFORMIN [Concomitant]
  5. SALURES [Concomitant]
  6. TROMBYL [Concomitant]
  7. ALVEDON [Concomitant]
  8. DEPOLAN [Concomitant]
  9. TRAMADOL [Concomitant]

REACTIONS (4)
  - Myalgia [Not Recovered/Not Resolved]
  - Arthralgia [Not Recovered/Not Resolved]
  - Fatigue [Not Recovered/Not Resolved]
  - Type 2 diabetes mellitus [Not Recovered/Not Resolved]
